FAERS Safety Report 12053766 (Version 1)
Quarter: 2016Q1

REPORT INFORMATION
  Report Type: Spontaneous
  Country: US (occurrence: US)
  Receive Date: 20160209
  Receipt Date: 20160209
  Transmission Date: 20160526
  Serious: No
  Sender: FDA-Public Use
  Company Number: US-SA-2016SA016852

PATIENT
  Age: 58 Year
  Sex: Female
  Weight: 68 kg

DRUGS (3)
  1. ALIROCUMAB PREFILLED PEN [Concomitant]
     Active Substance: ALIROCUMAB
     Indication: BLOOD CHOLESTEROL INCREASED
     Dates: start: 20160119
  2. PRALUENT [Suspect]
     Active Substance: ALIROCUMAB
     Indication: BLOOD CHOLESTEROL INCREASED
     Dosage: ROUTE: UNDER SKIN
     Dates: start: 20160119
  3. VITAMIN D [Concomitant]
     Active Substance: CHOLECALCIFEROL

REACTIONS (12)
  - Pyrexia [Unknown]
  - Headache [Unknown]
  - Pain [Unknown]
  - Dysphonia [Unknown]
  - Myalgia [Unknown]
  - Dyspepsia [Unknown]
  - Malaise [Not Recovered/Not Resolved]
  - Influenza [Not Recovered/Not Resolved]
  - Unevaluable event [Unknown]
  - Rhinorrhoea [Unknown]
  - Influenza like illness [Unknown]
  - Head discomfort [Unknown]

NARRATIVE: CASE EVENT DATE: 20160119
